FAERS Safety Report 5138168-4 (Version None)
Quarter: 2006Q4

REPORT INFORMATION
  Report Type: 
  Country: None (occurrence: None)
  Receive Date: 20061030
  Receipt Date: 20061016
  Transmission Date: 20070319
  Serious: Yes (Hospitalization, Other)
  Sender: FDA-Public Use
  Company Number: US-JNJFOC-20061004272

PATIENT
  Age: 38 Year
  Sex: Female

DRUGS (7)
  1. TRAMADOL HCL [Suspect]
     Indication: DRUG USE FOR UNKNOWN INDICATION
  2. CARISOPRODOL [Suspect]
     Indication: DRUG USE FOR UNKNOWN INDICATION
  3. ANTICONVULSANT (NOS) [Suspect]
     Indication: DRUG USE FOR UNKNOWN INDICATION
  4. APAP TAB [Suspect]
  5. APAP TAB [Suspect]
     Indication: DRUG USE FOR UNKNOWN INDICATION
  6. PREGABALIN [Concomitant]
  7. BARBITUATE WITH CAFFEINE [Concomitant]

REACTIONS (3)
  - DEPRESSION [None]
  - MULTIPLE DRUG OVERDOSE [None]
  - SOMNOLENCE [None]
